FAERS Safety Report 6910710-X (Version None)
Quarter: 2010Q3

REPORT INFORMATION
  Report Type: 
  Country: None (occurrence: None)
  Receive Date: 20100806
  Receipt Date: 20100728
  Transmission Date: 20110219
  Serious: Yes (Other)
  Sender: FDA-Public Use
  Company Number: DE-JNJFOC-20100708674

PATIENT

DRUGS (12)
  1. REMICADE [Suspect]
     Indication: ANKYLOSING SPONDYLITIS
     Route: 042
  2. REMICADE [Suspect]
     Route: 042
  3. ANTITUBERCULOSIS DRUG NOS [Suspect]
     Indication: TUBERCULOSIS
  4. METHOTREXATE [Concomitant]
     Route: 058
  5. PREDNISONE [Concomitant]
  6. CALCIUM [Concomitant]
  7. VITAMIN D [Concomitant]
  8. EPROSARTAN [Concomitant]
  9. HCT [Concomitant]
  10. AMLODIPINE [Concomitant]
  11. SIMVASTATIN [Concomitant]
  12. ACETYLSALICYLIC ACID SRT [Concomitant]

REACTIONS (8)
  - BRONCHIAL CARCINOMA [None]
  - DISSEMINATED TUBERCULOSIS [None]
  - HAEMANGIOMA [None]
  - HYPERCHOLESTEROLAEMIA [None]
  - HYPERTENSIVE HEART DISEASE [None]
  - LYMPHOMA [None]
  - PULMONARY FIBROSIS [None]
  - TRANSAMINASES INCREASED [None]
